FAERS Safety Report 8852691 (Version 1)
Quarter: 2012Q4

REPORT INFORMATION
  Report Type: 
  Country: US (occurrence: US)
  Receive Date: 20121022
  Receipt Date: 20121022
  Transmission Date: 20130627
  Serious: Yes (Hospitalization, Other)
  Sender: FDA-Public Use
  Company Number: PHHY2012US092578

PATIENT
  Age: 58 Year
  Sex: Male

DRUGS (8)
  1. ZOLEDRONIC ACID [Suspect]
     Indication: PROSTATE CANCER METASTATIC
     Dosage: UNK
     Dates: start: 200902
  2. BICALUTAMIDE [Suspect]
  3. GOSERELIN [Suspect]
  4. PREDNISONE [Suspect]
  5. DOCETAXEL [Concomitant]
     Dosage: 75 mg/m2, every 3 weeks
     Dates: end: 20100910
  6. SAMARIUM [153 SM] LEXIDRONAM PENTASODIUM [Concomitant]
  7. RADIATION THERAPY [Concomitant]
     Dosage: 30 GY, UNK
     Dates: start: 20101011, end: 20101022
  8. CABAZITAXEL [Concomitant]
     Dosage: 25 mg/m2, every 3 weeks

REACTIONS (17)
  - Gastrointestinal ulcer haemorrhage [Unknown]
  - Back pain [Unknown]
  - Nausea [Unknown]
  - Vomiting [Unknown]
  - Disseminated intravascular coagulation [Unknown]
  - Prostatic specific antigen increased [Unknown]
  - White blood cell count decreased [Recovered/Resolved]
  - Platelet count decreased [Recovering/Resolving]
  - Pain [Unknown]
  - Dyspnoea [Unknown]
  - Anaemia [Unknown]
  - Thrombocytopenia [Unknown]
  - Blood fibrinogen decreased [Recovered/Resolved]
  - Blood lactate dehydrogenase increased [Unknown]
  - Haemoglobin decreased [Unknown]
  - Neutropenia [Unknown]
  - Hypocalcaemia [Unknown]
